FAERS Safety Report 7938929-X (Version None)
Quarter: 2011Q4

REPORT INFORMATION
  Report Type: 
  Country: None (occurrence: None)
  Receive Date: 20111124
  Receipt Date: 20111121
  Transmission Date: 20120403
  Serious: Yes (Death)
  Sender: FDA-Public Use
  Company Number: JP-BRISTOL-MYERS SQUIBB COMPANY-16240210

PATIENT
  Age: 71 Year
  Sex: Female

DRUGS (2)
  1. PARAPLATIN [Suspect]
     Indication: FALLOPIAN TUBE CANCER
     Route: 041
     Dates: start: 20111018
  2. TAXOL [Suspect]
     Indication: FALLOPIAN TUBE CANCER
     Route: 041
     Dates: start: 20111018

REACTIONS (1)
  - GASTROINTESTINAL NECROSIS [None]
